FAERS Safety Report 25873868 (Version 1)
Quarter: 2025Q4

REPORT INFORMATION
  Report Type: Spontaneous
  Country: US (occurrence: US)
  Receive Date: 20251002
  Receipt Date: 20251002
  Transmission Date: 20260117
  Serious: No
  Sender: INTRA-CELLULAR THERAPIES
  Company Number: US-INTRA-CELLULAR THERAPIES, INC.-2025ICT01409

PATIENT
  Sex: Female

DRUGS (2)
  1. CAPLYTA [Suspect]
     Active Substance: LUMATEPERONE
     Dosage: UNK
     Dates: end: 2025
  2. CAPLYTA [Suspect]
     Active Substance: LUMATEPERONE
     Dosage: UNK
     Dates: start: 2025

REACTIONS (2)
  - Mania [Unknown]
  - Drug ineffective [Unknown]

NARRATIVE: CASE EVENT DATE: 20250201
